FAERS Safety Report 22265251 (Version 1)
Quarter: 2023Q2

REPORT INFORMATION
  Report Type: Report from Study
  Country: ES (occurrence: ES)
  Receive Date: 20230428
  Receipt Date: 20230428
  Transmission Date: 20230722
  Serious: Yes (Death, Life-Threatening, Hospitalization, Other)
  Sender: FDA-Public Use
  Company Number: ES-BRISTOL-MYERS SQUIBB COMPANY-2023-055298

PATIENT
  Age: 56 Year
  Sex: Male
  Weight: 145 kg

DRUGS (21)
  1. IDECABTAGENE VICLEUCEL [Suspect]
     Active Substance: IDECABTAGENE VICLEUCEL
     Indication: Plasma cell myeloma
     Dosage: DOSE: 450 10^6 CAR+ T CELLS?PRIOR TO THE EVENT PATIENT RECEIVED ONE DOSE
     Route: 042
     Dates: start: 20211021, end: 20211021
  2. CYCLOPHOSPHAMIDE [Suspect]
     Active Substance: CYCLOPHOSPHAMIDE
     Indication: Plasma cell myeloma
     Route: 042
     Dates: start: 20211016, end: 20211018
  3. FLUDARABINE [Suspect]
     Active Substance: FLUDARABINE PHOSPHATE
     Indication: Plasma cell myeloma
     Route: 042
     Dates: start: 20211016, end: 20211018
  4. TRAZODONE [Concomitant]
     Active Substance: TRAZODONE HYDROCHLORIDE
     Indication: Prophylaxis
     Dosage: 150 MG X 1 X 1 DAYS
     Route: 048
     Dates: end: 20211027
  5. LORAZEPAM [Concomitant]
     Active Substance: LORAZEPAM
     Indication: Prophylaxis
     Dosage: 1 MG X 1 X 1 DAYS
     Route: 048
     Dates: start: 20211015, end: 20211027
  6. ONDASENTRON [Concomitant]
     Indication: Prophylaxis of nausea and vomiting
     Dosage: FREQUENCY TEXT: PRN?8 MG X PRN
     Route: 042
     Dates: start: 20211016, end: 20211019
  7. PANTOPRAZOLE [Concomitant]
     Active Substance: PANTOPRAZOLE
     Indication: Prophylaxis
     Dosage: 40 MG X 1 X 1 DAYS
     Route: 048
     Dates: start: 20211016, end: 20211027
  8. PFIZER COVID 19 VACCINE (THIRD DOSE) [Concomitant]
     Indication: COVID-19 immunisation
     Dosage: FREQUENCY TEXT: ONCE?1 APPLICATION X ONCE
     Route: 030
     Dates: start: 20210928, end: 20210928
  9. PROPOFOL [Concomitant]
     Active Substance: PROPOFOL
     Indication: Anaesthesia
     Dosage: FREQUENCY TEXT: ONCE?200 MG X ONCE
     Route: 042
     Dates: start: 20211011, end: 20211011
  10. PUNTUALSENNA [Concomitant]
     Indication: Laxative supportive care
     Dosage: 8 APPLICATION X 1 X 8 HOURS
     Route: 048
     Dates: start: 20211018
  11. ADRENALIN [Concomitant]
     Active Substance: EPINEPHRINE
     Indication: Circulatory collapse
     Route: 042
     Dates: start: 20211030
  12. AMIODARONE [Concomitant]
     Active Substance: AMIODARONE
     Indication: Arrhythmia prophylaxis
     Route: 042
     Dates: start: 20211027
  13. CASPOFUNGIN [Concomitant]
     Active Substance: CASPOFUNGIN
     Indication: Antifungal prophylaxis
     Route: 042
     Dates: start: 20211028
  14. CEFEPIME [Concomitant]
     Active Substance: CEFEPIME HYDROCHLORIDE
     Indication: Antibiotic prophylaxis
     Route: 042
     Dates: start: 20211021, end: 20211024
  15. CINITAPRIDE [Concomitant]
     Active Substance: CINITAPRIDE
     Indication: Prophylaxis
     Route: 042
     Dates: start: 20211029
  16. CISATRACURIO [Concomitant]
     Indication: Sedative therapy
     Route: 042
     Dates: start: 20211029
  17. ALBUMIN HUMAN [Concomitant]
     Active Substance: ALBUMIN HUMAN
     Indication: Hypotension
     Route: 042
     Dates: start: 20211027
  18. IBUPROFEN [Concomitant]
     Active Substance: IBUPROFEN
     Indication: Bone pain
     Route: 048
     Dates: start: 20210929, end: 20210930
  19. MEROPENEM [Concomitant]
     Active Substance: MEROPENEM
     Indication: Antibiotic prophylaxis
     Route: 042
     Dates: start: 20211024
  20. ACETAMINOPHEN [Concomitant]
     Active Substance: ACETAMINOPHEN
     Indication: Premedication
     Route: 042
     Dates: start: 20211021, end: 20211021
  21. POLARAMINE [Concomitant]
     Active Substance: DEXCHLORPHENIRAMINE MALEATE
     Indication: Premedication
     Route: 042
     Dates: start: 20211021, end: 20211021

REACTIONS (3)
  - Acute kidney injury [Not Recovered/Not Resolved]
  - Cytokine release syndrome [Fatal]
  - Haemophagocytic lymphohistiocytosis [Not Recovered/Not Resolved]

NARRATIVE: CASE EVENT DATE: 20211021
